FAERS Safety Report 9094529 (Version 1)
Quarter: 2013Q1

REPORT INFORMATION
  Report Type: Spontaneous
  Country: AR (occurrence: AR)
  Receive Date: 20130219
  Receipt Date: 20130219
  Transmission Date: 20140127
  Serious: Yes (Death, Hospitalization)
  Sender: FDA-Public Use
  Company Number: PHHY2012AR127483

PATIENT
  Age: 83 Year
  Sex: Female

DRUGS (1)
  1. EXFORGE [Suspect]
     Route: 048

REACTIONS (3)
  - Myocardial infarction [Fatal]
  - Coma [Unknown]
  - Cardiac disorder [Unknown]
